FAERS Safety Report 7130607-2 (Version None)
Quarter: 2010Q4

REPORT INFORMATION
  Report Type: 
  Country: None (occurrence: None)
  Receive Date: 20101101
  Receipt Date: 20100909
  Transmission Date: 20110411
  Serious: No
  Sender: FDA-Public Use
  Company Number: 2010-12256

PATIENT
  Age: 53 Year
  Sex: Male

DRUGS (3)
  1. RAPAFLO [Suspect]
     Indication: BENIGN PROSTATIC HYPERPLASIA
     Dosage: 8 MG, UNKNOWN, ORAL
     Route: 048
     Dates: start: 20100805
  2. LIDOCAINE (WATSON LABORATORIES) (LIDOCAINE) TRANSDERMAL PATCH [Concomitant]
  3. VIAGRA [Concomitant]

REACTIONS (3)
  - LIP BLISTER [None]
  - MOUTH ULCERATION [None]
  - ORAL MUCOSAL EXFOLIATION [None]
